FAERS Safety Report 23311370 (Version 4)
Quarter: 2024Q1

REPORT INFORMATION
  Report Type: Spontaneous
  Country: BG (occurrence: BG)
  Receive Date: 20231219
  Receipt Date: 20240129
  Transmission Date: 20240409
  Serious: Yes (Hospitalization, Other)
  Sender: FDA-Public Use
  Company Number: None

PATIENT
  Age: 86 Year
  Sex: Male

DRUGS (16)
  1. OLANZAPINE [Suspect]
     Active Substance: OLANZAPINE
     Indication: Product used for unknown indication
     Dosage: 0.5 DOSAGE FORM, ONCE PER DAY
     Route: 065
  2. VENLAFAXINE HYDROCHLORIDE [Suspect]
     Active Substance: VENLAFAXINE HYDROCHLORIDE
     Indication: Product used for unknown indication
     Dosage: 2 DOSAGE FORM, ONCE PER DAY
     Route: 065
  3. BISOPROLOL FUMARATE [Suspect]
     Active Substance: BISOPROLOL FUMARATE
     Indication: Atrial fibrillation
     Dosage: 1 DOSAGE FORM, ONCE PER DAY
     Route: 065
  4. BISOPROLOL FUMARATE [Suspect]
     Active Substance: BISOPROLOL FUMARATE
     Indication: Hypertension
  5. ELIQUIS [Concomitant]
     Active Substance: APIXABAN
     Indication: Atrial fibrillation
     Dosage: 1 DOSAGE FORM, ONCE PER DAY
     Route: 065
  6. ELIQUIS [Concomitant]
     Active Substance: APIXABAN
     Indication: Hypertension
  7. BROMAZEPAM [Concomitant]
     Active Substance: BROMAZEPAM
     Indication: Product used for unknown indication
     Dosage: 1 DOSAGE FORM, EVERY OTHER DAY
     Route: 065
  8. BROMAZEPAM [Concomitant]
     Active Substance: BROMAZEPAM
     Dosage: 0.5 DOSAGE FORM, EVERY OTHER DAY
     Route: 065
  9. DIGOXIN [Concomitant]
     Active Substance: DIGOXIN
     Indication: Atrial fibrillation
     Dosage: 0.5 DOSAGE FORM, ONCE PER DAY
     Route: 065
  10. DIGOXIN [Concomitant]
     Active Substance: DIGOXIN
     Indication: Hypertension
  11. NEXIUM I.V. [Concomitant]
     Active Substance: ESOMEPRAZOLE SODIUM
     Indication: Product used for unknown indication
     Dosage: 0.5 DOSAGE FORM, ONCE PER DAY
     Route: 065
  12. PREGABALIN [Concomitant]
     Active Substance: PREGABALIN
     Indication: Product used for unknown indication
     Dosage: 1 DOSAGE FORM, ONCE PER DAY
     Route: 065
  13. QUETIAPINE FUMARATE [Concomitant]
     Active Substance: QUETIAPINE FUMARATE
     Indication: Product used for unknown indication
     Dosage: 2 DOSAGE FORM, EVERY OTHER DAY
     Route: 065
  14. QUETIAPINE FUMARATE [Concomitant]
     Active Substance: QUETIAPINE FUMARATE
     Dosage: 1 DOSAGE FORM, EVERY OTHER DAY
     Route: 065
  15. ZOPICLONE [Concomitant]
     Active Substance: ZOPICLONE
     Indication: Product used for unknown indication
     Dosage: 1 DOSAGE FORM, EVERY OTHER DAY
     Route: 065
  16. ZOPICLONE [Concomitant]
     Active Substance: ZOPICLONE
     Dosage: 0.5 DOSAGE FORM, EVERY OTHER DAY
     Route: 065

REACTIONS (1)
  - Basal cell carcinoma [Recovered/Resolved]

NARRATIVE: CASE EVENT DATE: 20170101
